FAERS Safety Report 12940211 (Version 1)
Quarter: 2016Q4

REPORT INFORMATION
  Report Type: Spontaneous
  Country: US (occurrence: US)
  Receive Date: 20161115
  Receipt Date: 20161115
  Transmission Date: 20170207
  Serious: Yes (Hospitalization)
  Sender: FDA-Public Use
  Company Number: None

PATIENT
  Age: 58 Year
  Sex: Male
  Weight: 68.4 kg

DRUGS (3)
  1. ATORVASTATIN [Suspect]
     Active Substance: ATORVASTATIN
     Indication: HYPERLIPIDAEMIA
     Route: 048
     Dates: start: 20161004, end: 20161024
  2. CIPROFLOXACIN. [Suspect]
     Active Substance: CIPROFLOXACIN
     Indication: PERITONITIS BACTERIAL
     Route: 048
     Dates: start: 20161002, end: 20161027
  3. CIPROFLOXACIN. [Suspect]
     Active Substance: CIPROFLOXACIN
     Indication: PROPHYLAXIS
     Route: 048
     Dates: start: 20161002, end: 20161027

REACTIONS (6)
  - Rhabdomyolysis [None]
  - Myopathy [None]
  - Myalgia [None]
  - Blood creatine phosphokinase increased [None]
  - Polymyositis [None]
  - Drug hypersensitivity [None]

NARRATIVE: CASE EVENT DATE: 20161026
